FAERS Safety Report 7579706-1 (Version None)
Quarter: 2011Q2

REPORT INFORMATION
  Report Type: 
  Country: None (occurrence: None)
  Receive Date: 20110622
  Receipt Date: 20110610
  Transmission Date: 20111010
  Serious: Yes (Death, Hospitalization, Disabling, Other)
  Sender: FDA-Public Use
  Company Number: 949200

PATIENT
  Sex: Female

DRUGS (1)
  1. VANCOMYCIN HCL [Suspect]
     Indication: PRODUCT USED FOR UNKNOWN INDICATION
     Dates: start: 20090101, end: 20090101

REACTIONS (3)
  - TOXIC EPIDERMAL NECROLYSIS [None]
  - SCAR [None]
  - HYPERSENSITIVITY [None]
